FAERS Safety Report 18375697 (Version 1)
Quarter: 2020Q4

REPORT INFORMATION
  Report Type: Spontaneous
  Country: US (occurrence: US)
  Receive Date: 20201009
  Receipt Date: 20201009
  Transmission Date: 20210114
  Serious: No
  Sender: FDA-Public Use
  Company Number: None

PATIENT
  Sex: Female

DRUGS (11)
  1. BENZONATATE. [Concomitant]
     Active Substance: BENZONATATE
  2. PROCHLORPERAZINE MALEATE. [Concomitant]
     Active Substance: PROCHLORPERAZINE MALEATE
  3. TURMERIC [Concomitant]
     Active Substance: HERBALS\TURMERIC
  4. IBRANCE [Suspect]
     Active Substance: PALBOCICLIB
     Indication: BREAST CANCER
     Route: 048
     Dates: start: 20190912
  5. CALCIUM 600 [Concomitant]
     Active Substance: CALCIUM
  6. NAPROXEN SODIUM. [Concomitant]
     Active Substance: NAPROXEN SODIUM
  7. CLINDAMYCIN PHOSPHATE. [Concomitant]
     Active Substance: CLINDAMYCIN PHOSPHATE
  8. GLUCOSAMINE CHONDR 500 COMPLEX [Concomitant]
  9. LETROZOLE. [Concomitant]
     Active Substance: LETROZOLE
  10. VITAMIN D [Concomitant]
     Active Substance: VITAMIN D NOS
  11. MULTIVITAMIN ADULTS [Concomitant]

REACTIONS (4)
  - Weight increased [None]
  - Fatigue [None]
  - Rash [None]
  - Dizziness [None]
